FAERS Safety Report 24095201 (Version 2)
Quarter: 2024Q3

REPORT INFORMATION
  Report Type: Report from Study
  Country: CO (occurrence: CO)
  Receive Date: 20240716
  Receipt Date: 20240719
  Transmission Date: 20241016
  Serious: Yes (Death, Hospitalization, Other)
  Sender: EXELIXIS
  Company Number: CO-IPSEN Group, Research and Development-2023-24130

PATIENT
  Age: 66 Year
  Sex: Male
  Weight: 62 kg

DRUGS (4)
  1. CABOMETYX [Suspect]
     Active Substance: CABOZANTINIB S-MALATE
     Indication: Renal cell carcinoma
     Dosage: 60 MG, QD
     Dates: start: 20230928
  2. CABOMETYX [Suspect]
     Active Substance: CABOZANTINIB S-MALATE
     Dosage: 60 MG, QD
     Dates: end: 20240519
  3. CABOMETYX [Suspect]
     Active Substance: CABOZANTINIB S-MALATE
     Dosage: UNK
     Route: 065
  4. ACETAMINOPHEN [Concomitant]
     Active Substance: ACETAMINOPHEN
     Indication: Pain management
     Dosage: UNK
     Route: 048
     Dates: start: 20231015

REACTIONS (34)
  - Death [Fatal]
  - Loss of consciousness [Unknown]
  - Pneumonia [Unknown]
  - Metastases to lung [Unknown]
  - Hyperthyroidism [Not Recovered/Not Resolved]
  - Pyrexia [Unknown]
  - Urinary tract infection [Unknown]
  - Renal mass [Not Recovered/Not Resolved]
  - Dysarthria [Unknown]
  - Malnutrition [Unknown]
  - Food refusal [Unknown]
  - Oedema peripheral [Not Recovered/Not Resolved]
  - Product supply issue [Unknown]
  - Pain in extremity [Recovering/Resolving]
  - Weight decreased [Unknown]
  - Dysphonia [Unknown]
  - Asthenia [Unknown]
  - Decreased appetite [Unknown]
  - Diarrhoea [Unknown]
  - Asthenia [Not Recovered/Not Resolved]
  - Diarrhoea [Not Recovered/Not Resolved]
  - Vomiting [Not Recovered/Not Resolved]
  - Nausea [Not Recovered/Not Resolved]
  - Headache [Not Recovered/Not Resolved]
  - Weight decreased [Not Recovered/Not Resolved]
  - Dizziness [Unknown]
  - Gait disturbance [Not Recovered/Not Resolved]
  - Blister [Not Recovered/Not Resolved]
  - Erythema [Not Recovered/Not Resolved]
  - Skin exfoliation [Not Recovered/Not Resolved]
  - Aversion [Unknown]
  - Pain in extremity [Not Recovered/Not Resolved]
  - Product dose omission issue [Unknown]
  - Depression [Unknown]

NARRATIVE: CASE EVENT DATE: 20231013
